FAERS Safety Report 13726177 (Version 1)
Quarter: 2017Q3

REPORT INFORMATION
  Report Type: Spontaneous
  Country: US (occurrence: US)
  Receive Date: 20170707
  Receipt Date: 20170707
  Transmission Date: 20171127
  Serious: Yes (Death)
  Sender: FDA-Public Use
  Company Number: None

PATIENT
  Sex: Male

DRUGS (11)
  1. PANTOPRAZOLE [Concomitant]
     Active Substance: PANTOPRAZOLE
  2. LIPITOR [Concomitant]
     Active Substance: ATORVASTATIN CALCIUM
  3. XOLAIR [Suspect]
     Active Substance: OMALIZUMAB
     Indication: ASTHMA
     Dosage: ?          OTHER DOSE:MG;OTHER FREQUENCY:Q 2 WEEKS;?
     Route: 058
     Dates: start: 20130206
  4. CENTRUM SILVER [Concomitant]
     Active Substance: MINERALS\VITAMINS
  5. COZAAR [Concomitant]
     Active Substance: LOSARTAN POTASSIUM
  6. ALVESCO [Concomitant]
     Active Substance: CICLESONIDE
  7. FORADIL [Concomitant]
     Active Substance: FORMOTEROL FUMARATE
  8. FLUTICASONE. [Concomitant]
     Active Substance: FLUTICASONE
  9. PROAIR HFA [Concomitant]
     Active Substance: ALBUTEROL SULFATE
  10. AZELASTINE [Concomitant]
     Active Substance: AZELASTINE
  11. MUCINEX [Concomitant]
     Active Substance: GUAIFENESIN

REACTIONS (1)
  - Death [None]
